FAERS Safety Report 12771163 (Version 1)
Quarter: 2016Q3

REPORT INFORMATION
  Report Type: Spontaneous
  Country: BR (occurrence: BR)
  Receive Date: 20160922
  Receipt Date: 20160922
  Transmission Date: 20161109
  Serious: Yes (Hospitalization, Other)
  Sender: FDA-Public Use
  Company Number: BR-PFIZER INC-2015333900

PATIENT
  Age: 68 Year
  Sex: Female
  Weight: 60 kg

DRUGS (2)
  1. SINVASTACOR [Concomitant]
     Active Substance: SIMVASTATIN
     Indication: BLOOD CHOLESTEROL INCREASED
     Dosage: 1 TABLET DAILY
  2. LORAX [Suspect]
     Active Substance: LORAZEPAM
     Dosage: 4 MG, 2X/DAY
     Route: 048
     Dates: start: 2000, end: 2009

REACTIONS (9)
  - Asthmatic crisis [Not Recovered/Not Resolved]
  - Asthma [Not Recovered/Not Resolved]
  - Condition aggravated [Not Recovered/Not Resolved]
  - Jaw fracture [Not Recovered/Not Resolved]
  - Heart rate irregular [Recovered/Resolved]
  - Headache [Unknown]
  - Syncope [Unknown]
  - Hyperthyroidism [Recovered/Resolved]
  - Cerebral ischaemia [Not Recovered/Not Resolved]

NARRATIVE: CASE EVENT DATE: 2005
